FAERS Safety Report 25990520 (Version 4)
Quarter: 2025Q4

REPORT INFORMATION
  Report Type: Spontaneous
  Country: US (occurrence: US)
  Receive Date: 20251103
  Receipt Date: 20251218
  Transmission Date: 20260118
  Serious: No
  Sender: PFIZER
  Company Number: US-PFIZER INC-202500211921

PATIENT
  Age: 86 Year
  Sex: Male
  Weight: 84 kg

DRUGS (1)
  1. NYVEPRIA [Suspect]
     Active Substance: PEGFILGRASTIM-APGF
     Indication: Neutropenia
     Dosage: UNK

REACTIONS (4)
  - Accidental exposure to product packaging [Recovered/Resolved]
  - Injury associated with device [Recovered/Resolved]
  - Device defective [Recovered/Resolved]
  - Device issue [Recovered/Resolved]

NARRATIVE: CASE EVENT DATE: 20250101
